FAERS Safety Report 10110089 (Version 4)
Quarter: 2015Q1

REPORT INFORMATION
  Report Type: Spontaneous
  Country: US (occurrence: None)
  Receive Date: 20140421
  Receipt Date: 20150120
  Transmission Date: 20150720
  Serious: No
  Sender: FDA-Public Use
  Company Number: AEGR000366

PATIENT
  Age: 55 Year
  Sex: Male
  Weight: 99.8 kg

DRUGS (2)
  1. ASPIRIN (ACETYLSALICYLIC ACID) [Concomitant]
     Active Substance: ASPIRIN
  2. JUXTAPID [Suspect]
     Active Substance: LOMITAPIDE MESYLATE
     Indication: TYPE IIA HYPERLIPIDAEMIA
     Route: 048
     Dates: start: 20140219, end: 20140907

REACTIONS (3)
  - Glucose tolerance impaired [None]
  - Muscle spasms [None]
  - Weight decreased [None]

NARRATIVE: CASE EVENT DATE: 201402
